FAERS Safety Report 9360710 (Version 3)
Quarter: 2013Q4

REPORT INFORMATION
  Report Type: Report from Study
  Country: BR (occurrence: BR)
  Receive Date: 20130621
  Receipt Date: 20131023
  Transmission Date: 20140711
  Serious: Yes (Other)
  Sender: FDA-Public Use
  Company Number: BR-ROCHE-1239801

PATIENT
  Sex: Female
  Weight: 68 kg

DRUGS (4)
  1. XOLAIR [Suspect]
     Indication: ASTHMA
     Route: 058
  2. XOLAIR [Suspect]
     Route: 065
     Dates: end: 20130521
  3. SERETIDE [Concomitant]
  4. PREDSIM [Concomitant]

REACTIONS (4)
  - Asthma [Not Recovered/Not Resolved]
  - Sinusitis [Unknown]
  - Weight increased [Not Recovered/Not Resolved]
  - Hypersensitivity [Not Recovered/Not Resolved]
